FAERS Safety Report 7078314-9 (Version None)
Quarter: 2010Q4

REPORT INFORMATION
  Report Type: 
  Country: None (occurrence: None)
  Receive Date: 20101102
  Receipt Date: 20101020
  Transmission Date: 20110411
  Serious: Yes (Hospitalization, Other)
  Sender: FDA-Public Use
  Company Number: US-ELI_LILLY_AND_COMPANY-US201010005219

PATIENT
  Age: 76 Year
  Sex: Female
  Weight: 60.317 kg

DRUGS (7)
  1. FORTEO [Suspect]
     Dosage: 20 UG, DAILY (1/D)
     Route: 058
  2. ARIMIDEX [Concomitant]
     Indication: BREAST CANCER
     Dosage: 1 MG, DAILY (1/D)
     Dates: start: 20051213, end: 20100804
  3. NORVASC [Concomitant]
     Dosage: 10 MG, DAILY (1/D)
  4. SPIRIVA [Concomitant]
     Dosage: UNK, 1 PUFF A DAY
     Route: 055
  5. HYDROCHLOROTHIAZIDE [Concomitant]
     Dosage: 25 MG, DAILY (1/D)
     Route: 065
  6. EFFEXOR XR [Concomitant]
     Dosage: 150 MG, DAILY (1/D)
     Route: 065
  7. LISINOPRIL [Concomitant]
     Dosage: 40 MG, DAILY (1/D)
     Route: 065

REACTIONS (5)
  - BUNDLE BRANCH BLOCK LEFT [None]
  - CARDIAC FAILURE CONGESTIVE [None]
  - MYOCARDIAL INFARCTION [None]
  - RESTRICTIVE CARDIOMYOPATHY [None]
  - TROPONIN I INCREASED [None]
